FAERS Safety Report 9513069 (Version 1)
Quarter: 2013Q3

REPORT INFORMATION
  Report Type: Spontaneous
  Country: IN (occurrence: US)
  Receive Date: 20130910
  Receipt Date: 20130910
  Transmission Date: 20140515
  Serious: Yes (Other)
  Sender: FDA-Public Use
  Company Number: US-PFIZER INC-2013254301

PATIENT
  Age: 36 Year
  Sex: Female

DRUGS (1)
  1. SEPTRA [Suspect]
     Dosage: UNK

REACTIONS (2)
  - Angle closure glaucoma [Recovered/Resolved]
  - Myopia [Recovered/Resolved]
